FAERS Safety Report 9133181 (Version 1)
Quarter: 2013Q1

REPORT INFORMATION
  Report Type: Report from Study
  Country: VE (occurrence: VE)
  Receive Date: 20130301
  Receipt Date: 20130301
  Transmission Date: 20140127
  Serious: Yes (Other)
  Sender: FDA-Public Use
  Company Number: VE-ABBOTT-13P-178-1054747-00

PATIENT
  Sex: Female

DRUGS (4)
  1. HUMIRA [Suspect]
     Indication: RHEUMATOID ARTHRITIS
     Route: 058
     Dates: start: 201210, end: 20130218
  2. MEDROL [Concomitant]
     Indication: RHEUMATOID ARTHRITIS
     Dosage: VO
  3. PRANEX [Concomitant]
     Indication: RHEUMATOID ARTHRITIS
     Dosage: VO
  4. FOLIC AC [Concomitant]
     Indication: RHEUMATOID ARTHRITIS
     Dosage: VO

REACTIONS (4)
  - Haemoglobin decreased [Unknown]
  - Arthralgia [Unknown]
  - Hyperoxia [Unknown]
  - Gait disturbance [Unknown]
